FAERS Safety Report 8402814 (Version 9)
Quarter: 2013Q1

REPORT INFORMATION
  Report Type: Spontaneous
  Country: US (occurrence: US)
  Receive Date: 20120213
  Receipt Date: 20130131
  Transmission Date: 20140127
  Serious: Yes (Hospitalization, Congenital Anomaly, Other)
  Sender: FDA-Public Use
  Company Number: US-PFIZER INC-2012034294

PATIENT
  Sex: Male
  Weight: 3.1 kg

DRUGS (30)
  1. ZOLOFT [Suspect]
     Indication: ANXIETY
     Dosage: 50 MG, EVERY DAY
     Route: 064
     Dates: start: 20051019
  2. ZOLOFT [Suspect]
     Indication: DEPRESSION
  3. ZOLOFT [Suspect]
     Indication: AFFECTIVE DISORDER
  4. ARMOUR THYROID [Concomitant]
     Indication: HYPOTHYROIDISM
     Dosage: 30 MG, EVERY DAY
     Route: 064
     Dates: start: 20050422
  5. ARMOUR THYROID [Concomitant]
     Dosage: UNK
     Route: 064
     Dates: start: 20051213
  6. ARMOUR THYROID [Concomitant]
     Dosage: 15 MG, 1X/DAY
     Route: 064
     Dates: start: 20060120
  7. ARMOUR THYROID [Concomitant]
     Dosage: 60 MG, 1X/DAY
     Route: 064
     Dates: start: 20090505
  8. PRENATAL VITAMINS [Concomitant]
     Dosage: UNK
     Route: 064
  9. TRAMADOL [Concomitant]
     Dosage: 50 MG, ONE TO TWO TABLETS ORALLY EVERY SIX HOURS AS NEEDED
     Route: 064
     Dates: start: 20051101
  10. LYRICA [Concomitant]
     Dosage: 75 MG, 1X/DAY, (EVERY NIGHT)
     Route: 064
     Dates: start: 20080110
  11. VITAMIN B6 [Concomitant]
     Dosage: UNK
     Route: 064
     Dates: start: 20080822
  12. TYLENOL 4 [Concomitant]
     Indication: BACK PAIN
     Dosage: UNK
     Route: 064
     Dates: start: 20051213
  13. TYLENOL 4 [Concomitant]
     Dosage: ONE TO TWO TABLETS EVERY 6 HOURS TO 8 HOURS
     Route: 064
     Dates: start: 20071218
  14. TYLENOL 4 [Concomitant]
     Dosage: HALF TABLET, THREE TO FOUR TIMES A DAY
     Route: 064
     Dates: start: 20080110
  15. ZOFRAN ODT [Concomitant]
     Dosage: 08 MG, 4X/DAY
     Route: 064
     Dates: start: 20080201
  16. VICODIN [Concomitant]
     Dosage: UNK
     Route: 064
     Dates: start: 20071226
  17. ONDANSETRON [Concomitant]
     Indication: NAUSEA
     Dosage: 8 MG, UNK
     Route: 064
     Dates: start: 20080201
  18. ONDANSETRON [Concomitant]
     Dosage: 4 MG, ONE TO TWO TABLETS ORALLY EVERY SIX HOURS AS NEEDED
     Route: 064
     Dates: start: 20091228
  19. PRIMACARE [Concomitant]
     Dosage: UNK
     Route: 064
     Dates: start: 20080310
  20. VITAPHIL [Concomitant]
     Dosage: UNK
     Route: 064
     Dates: start: 20080409
  21. ACETAMINOPHEN/CODEINE [Concomitant]
     Dosage: 50 MG, 2X/DAY
     Route: 064
     Dates: start: 20050518
  22. PENICILLIN VK [Concomitant]
     Dosage: 500 MG, UNK
     Route: 064
     Dates: start: 20071226
  23. AMOXICILIN [Concomitant]
     Dosage: UNK
     Route: 064
  24. HYDROCODONE [Concomitant]
     Dosage: UNK
     Route: 064
  25. AZITHROMYCIN [Concomitant]
     Dosage: UNK
     Route: 064
  26. PROMETHAZINE [Concomitant]
     Dosage: UNK
     Route: 064
  27. CEFADROXIL [Concomitant]
     Dosage: UNK
     Route: 064
  28. PENICILLIN NOS [Concomitant]
     Dosage: UNK
     Route: 064
  29. MINOCYCLINE [Concomitant]
     Dosage: UNK
     Route: 064
  30. POLYETHYLENE GLYCOL [Concomitant]
     Dosage: UNK
     Route: 064

REACTIONS (12)
  - Maternal exposure timing unspecified [Unknown]
  - Exomphalos [Unknown]
  - Neonatal respiratory distress syndrome [Recovered/Resolved]
  - Patent ductus arteriosus [Recovered/Resolved]
  - Atrial septal defect [Unknown]
  - Sepsis neonatal [Recovered/Resolved]
  - Congenital naevus [Unknown]
  - Cyanosis [Recovered/Resolved]
  - Jaundice neonatal [Recovered/Resolved]
  - Hydrocele [Unknown]
  - Supraventricular tachycardia [Recovered/Resolved]
  - Foetal growth restriction [Unknown]
